FAERS Safety Report 4984595-5 (Version None)
Quarter: 2006Q2

REPORT INFORMATION
  Report Type: 
  Country: None (occurrence: None)
  Receive Date: 20060427
  Receipt Date: 20060420
  Transmission Date: 20061013
  Serious: Yes (Death)
  Sender: FDA-Public Use
  Company Number: US-SANOFI-SYNTHELABO-A03200602544

PATIENT
  Age: 92 Year
  Sex: Female
  Weight: 57.59 kg

DRUGS (7)
  1. PLAVIX [Suspect]
     Indication: TRANSIENT ISCHAEMIC ATTACK
     Route: 048
     Dates: start: 20050801
  2. MAXZIDE [Concomitant]
     Route: 048
     Dates: start: 20040101
  3. TOPROL-XL [Concomitant]
     Route: 048
     Dates: start: 20040101
  4. CATAPRES [Concomitant]
     Dosage: ^10 TO 40^ DAILY
     Route: 048
     Dates: start: 20040101
  5. ALTACE [Concomitant]
     Route: 048
     Dates: start: 20040101
  6. PROTONIX [Concomitant]
     Route: 048
     Dates: start: 20040101
  7. IMDUR [Concomitant]
     Route: 048
     Dates: start: 20040101

REACTIONS (1)
  - MYOCARDIAL INFARCTION [None]
